FAERS Safety Report 6248164-1 (Version None)
Quarter: 2009Q2

REPORT INFORMATION
  Report Type: 
  Country: None (occurrence: None)
  Receive Date: 20090624
  Receipt Date: 20090624
  Transmission Date: 20091009
  Serious: Yes (Life-Threatening, Hospitalization)
  Sender: FDA-Public Use
  Company Number: None

PATIENT
  Sex: Female
  Weight: 86.1834 kg

DRUGS (1)
  1. LYRICA [Suspect]
     Indication: NEUROPATHY PERIPHERAL
     Dosage: 300MG AT BEDTIME
     Dates: start: 20050701, end: 20080801

REACTIONS (3)
  - CEREBROVASCULAR ACCIDENT [None]
  - RENAL FAILURE [None]
  - THINKING ABNORMAL [None]
